FAERS Safety Report 5281342-7 (Version None)
Quarter: 2007Q1

REPORT INFORMATION
  Report Type: 
  Country: None (occurrence: None)
  Receive Date: 20070330
  Receipt Date: 20070320
  Transmission Date: 20070707
  Serious: Yes (Hospitalization)
  Sender: FDA-Public Use
  Company Number: IT-BAYER-200711040GDS

PATIENT
  Age: 60 Year
  Sex: Female
  Weight: 87 kg

DRUGS (2)
  1. SORAFENIB [Suspect]
     Indication: RENAL CELL CARCINOMA STAGE UNSPECIFIED
     Dosage: TOTAL DAILY DOSE: 800 MG
     Route: 048
     Dates: start: 20060703, end: 20070117
  2. INTERFERON ALPHA 2A [Suspect]
     Indication: RENAL CELL CARCINOMA STAGE UNSPECIFIED
     Route: 065

REACTIONS (2)
  - DYSPNOEA [None]
  - PULMONARY EMBOLISM [None]
